FAERS Safety Report 13346837 (Version 1)
Quarter: 2017Q1

REPORT INFORMATION
  Report Type: Spontaneous
  Country: DE (occurrence: DE)
  Receive Date: 20170317
  Receipt Date: 20170317
  Transmission Date: 20170428
  Serious: Yes (Hospitalization, Other)
  Sender: FDA-Public Use
  Company Number: DE-PFIZER INC-2017112826

PATIENT
  Age: 79 Year
  Sex: Female

DRUGS (2)
  1. LYRICA [Suspect]
     Active Substance: PREGABALIN
     Indication: ANXIETY DISORDER
     Dosage: 250 MG, DAILY
     Dates: start: 201609
  2. MIRTAZAPINE. [Concomitant]
     Active Substance: MIRTAZAPINE
     Indication: ANXIETY DISORDER

REACTIONS (3)
  - Visual acuity reduced [Unknown]
  - Vasculitis [Unknown]
  - Blindness unilateral [Unknown]

NARRATIVE: CASE EVENT DATE: 2016
